FAERS Safety Report 14293283 (Version 2)
Quarter: 2017Q4

REPORT INFORMATION
  Report Type: Spontaneous
  Country: CL (occurrence: CL)
  Receive Date: 20171215
  Receipt Date: 20171219
  Transmission Date: 20180321
  Serious: Yes (Death, Hospitalization, Other)
  Sender: FDA-Public Use
  Company Number: CL-BAXTER-2017BAX042120

PATIENT
  Age: 70 Year
  Sex: Male
  Weight: 68 kg

DRUGS (1)
  1. DIANEAL PD-2 PERITONEAL DIALYSIS SOLUTION WITH DEXTROSE [Suspect]
     Active Substance: CALCIUM CHLORIDE\DEXTROSE\MAGNESIUM CHLORIDE\SODIUM CHLORIDE\SODIUM LACTATE
     Indication: PERITONEAL DIALYSIS
     Dosage: 2 BAGS PER DAY
     Route: 033
     Dates: start: 201711, end: 20171201

REACTIONS (5)
  - Multiple organ dysfunction syndrome [Fatal]
  - Peritoneal dialysis complication [Unknown]
  - Abdominal pain [Unknown]
  - Coagulopathy [Unknown]
  - Peritoneal cloudy effluent [Not Recovered/Not Resolved]

NARRATIVE: CASE EVENT DATE: 20171130
